FAERS Safety Report 15254573 (Version 1)
Quarter: 2018Q3

REPORT INFORMATION
  Report Type: Spontaneous
  Country: US (occurrence: US)
  Receive Date: 20180717
  Receipt Date: 20180717
  Transmission Date: 20181010
  Serious: No
  Sender: FDA-Public Use
  Company Number: None

PATIENT

DRUGS (1)
  1. VALSARTAN. [Suspect]
     Active Substance: VALSARTAN

REACTIONS (7)
  - Palpitations [None]
  - Drug ineffective [None]
  - Headache [None]
  - Product substitution issue [None]
  - Feeling jittery [None]
  - Product use issue [None]
  - Nervousness [None]

NARRATIVE: CASE EVENT DATE: 20180219
